FAERS Safety Report 8584976-7 (Version None)
Quarter: 2012Q3

REPORT INFORMATION
  Report Type: 
  Country: None (occurrence: None)
  Receive Date: 20120802
  Receipt Date: 20120802
  Transmission Date: 20120928
  Serious: Yes (Other)
  Sender: FDA-Public Use
  Company Number: None

PATIENT
  Age: 50 Year
  Sex: Female

DRUGS (1)
  1. XELODA [Suspect]
     Indication: BREAST CANCER
     Dosage: 1500MG PO BID
     Route: 048
     Dates: start: 20120111

REACTIONS (6)
  - SKIN DISCOLOURATION [None]
  - PARAESTHESIA [None]
  - MYALGIA [None]
  - MUSCLE SPASMS [None]
  - HYPOAESTHESIA [None]
  - ABASIA [None]
